FAERS Safety Report 8219111-8 (Version None)
Quarter: 2012Q1

REPORT INFORMATION
  Report Type: 
  Country: None (occurrence: None)
  Receive Date: 20120319
  Receipt Date: 20120308
  Transmission Date: 20120608
  Serious: Yes (Other)
  Sender: FDA-Public Use
  Company Number: SE-JNJFOC-20120305946

PATIENT
  Sex: Female

DRUGS (3)
  1. RIVAROXABAN [Suspect]
     Indication: THROMBOSIS PROPHYLAXIS
     Route: 048
  2. CORTICOSTEROIDS [Concomitant]
  3. RIVAROXABAN [Suspect]
     Indication: BRAIN NEOPLASM
     Route: 048

REACTIONS (1)
  - DEEP VEIN THROMBOSIS [None]
